FAERS Safety Report 7654654-7 (Version None)
Quarter: 2011Q3

REPORT INFORMATION
  Report Type: 
  Country: None (occurrence: None)
  Receive Date: 20110804
  Receipt Date: 20110728
  Transmission Date: 20111222
  Serious: Yes (Death, Life-Threatening, Hospitalization)
  Sender: FDA-Public Use
  Company Number: IE-BRISTOL-MYERS SQUIBB COMPANY-15881717

PATIENT
  Age: 59 Year
  Sex: Female

DRUGS (4)
  1. SERETIDE [Concomitant]
     Dosage: INHALER, 1 DF : 1 PUFF
  2. PREGABALIN [Concomitant]
     Dates: start: 20110601
  3. OXYCONTIN [Concomitant]
     Dates: start: 20110601
  4. IPILIMUMAB [Suspect]
     Indication: MALIGNANT MELANOMA
     Dosage: 3 MG/KG
     Route: 042
     Dates: start: 20110617

REACTIONS (5)
  - PULMONARY EMBOLISM [None]
  - NEOPLASM MALIGNANT [None]
  - SEPSIS [None]
  - CELLULITIS [None]
  - RENAL IMPAIRMENT [None]
